FAERS Safety Report 5569402-4 (Version None)
Quarter: 2007Q4

REPORT INFORMATION
  Report Type: 
  Country: None (occurrence: None)
  Receive Date: 20071220
  Receipt Date: 20071217
  Transmission Date: 20080405
  Serious: Yes (Death, Life-Threatening, Hospitalization)
  Sender: FDA-Public Use
  Company Number: FR-WYE-H01759007

PATIENT
  Age: 88 Year
  Sex: Female

DRUGS (7)
  1. CORDARONE [Suspect]
     Dosage: 200 MG TABLET, DOSE AND FREQUENCY NOT PROVIDED
     Route: 048
     Dates: end: 20070612
  2. BURINEX [Concomitant]
     Dosage: NOT PROVIDED
     Route: 065
     Dates: end: 20070612
  3. POTASSIUM CHLORIDE [Concomitant]
     Dosage: NOT PROVIDED
     Route: 048
     Dates: end: 20070612
  4. HEMIGOXINE NATIVELLE [Concomitant]
     Dosage: NOT PROVIDED
     Route: 048
     Dates: end: 20070612
  5. LORAZEPAM [Concomitant]
     Dosage: NOT PROVIDED
     Route: 048
     Dates: end: 20070612
  6. CAPTOPRIL [Concomitant]
     Dosage: NOT PROVIDED
     Route: 048
     Dates: end: 20070612
  7. COUMADIN [Concomitant]
     Dosage: NOT PROVIDED
     Route: 048
     Dates: end: 20070613

REACTIONS (5)
  - COAGULOPATHY [None]
  - FALL [None]
  - HAEMORRHAGE [None]
  - HEAD INJURY [None]
  - HEPATIC CIRRHOSIS [None]
